FAERS Safety Report 10198743 (Version 1)
Quarter: 2014Q2

REPORT INFORMATION
  Report Type: Spontaneous
  Country: US (occurrence: None)
  Receive Date: 20140523
  Receipt Date: 20140523
  Transmission Date: 20141212
  Serious: No
  Sender: FDA-Public Use
  Company Number: None

PATIENT
  Age: 64 Year
  Sex: Female
  Weight: 86.18 kg

DRUGS (9)
  1. BACLOFEN [Suspect]
     Indication: MYALGIA
     Route: 048
     Dates: start: 20140506, end: 20140510
  2. ATENOLOL [Concomitant]
  3. FUROSEMIDE [Concomitant]
  4. AMLODIPINE [Concomitant]
  5. CRESTOR [Concomitant]
  6. POTASSIUM CITRATE [Concomitant]
  7. OXYCODONE [Concomitant]
  8. VITAMIN D [Concomitant]
  9. ACEDOMINOPHIN [Concomitant]

REACTIONS (4)
  - Dizziness [None]
  - Gait disturbance [None]
  - Tic [None]
  - Respiration abnormal [None]
